FAERS Safety Report 12966909 (Version 1)
Quarter: 2016Q4

REPORT INFORMATION
  Report Type: Spontaneous
  Country: US (occurrence: US)
  Receive Date: 20161121
  Receipt Date: 20161121
  Transmission Date: 20170207
  Serious: Yes (Death)
  Sender: FDA-Public Use
  Company Number: None

PATIENT
  Age: 79 Year
  Sex: Female

DRUGS (1)
  1. PROLIA [Suspect]
     Active Substance: DENOSUMAB
     Dosage: 60MG Q6M SQ
     Route: 058
     Dates: start: 20160303, end: 20161107

REACTIONS (1)
  - Death [None]

NARRATIVE: CASE EVENT DATE: 20161107
